FAERS Safety Report 8128203-3 (Version None)
Quarter: 2011Q4

REPORT INFORMATION
  Report Type: 
  Country: None (occurrence: None)
  Receive Date: 20111227
  Receipt Date: 20111117
  Transmission Date: 20120403
  Serious: No
  Sender: FDA-Public Use
  Company Number: PHEH2011US07292

PATIENT
  Age: 55 Year
  Sex: Female
  Weight: 80.3 kg

DRUGS (6)
  1. GILENYA [Suspect]
     Dosage: 1 DF, QD, ORAL
     Route: 048
  2. OXCARBAZEPINE [Concomitant]
  3. ATIVAN [Concomitant]
  4. LISINOPRIL [Concomitant]
  5. CYMBALTA [Concomitant]
  6. NORTRIPTYLINE (NORTRYPTYLINE) [Concomitant]

REACTIONS (5)
  - HALLUCINATION, AUDITORY [None]
  - GAIT DISTURBANCE [None]
  - OEDEMA PERIPHERAL [None]
  - VISION BLURRED [None]
  - MOVEMENT DISORDER [None]
